FAERS Safety Report 8969078 (Version 3)
Quarter: 2014Q1

REPORT INFORMATION
  Report Type: Spontaneous
  Country: IE (occurrence: IE)
  Receive Date: 20121218
  Receipt Date: 20140127
  Transmission Date: 20141002
  Serious: Yes (Hospitalization, Other)
  Sender: FDA-Public Use
  Company Number: IE-ASTRAZENECA-2012SE93846

PATIENT
  Age: 6 Month
  Sex: Male
  Weight: 6.2 kg

DRUGS (12)
  1. SYNAGIS [Suspect]
     Indication: PREMATURE BABY
     Route: 030
     Dates: start: 20121106
  2. SYNAGIS [Suspect]
     Indication: LUNG DISORDER
     Route: 030
     Dates: start: 20121106
  3. SYNAGIS [Suspect]
     Indication: PREMATURE BABY
     Route: 030
     Dates: start: 20130906
  4. SYNAGIS [Suspect]
     Indication: LUNG DISORDER
     Route: 030
     Dates: start: 20130906
  5. SYNAGIS [Suspect]
     Indication: PREMATURE BABY
     Route: 030
     Dates: start: 201310
  6. SYNAGIS [Suspect]
     Indication: LUNG DISORDER
     Route: 030
     Dates: start: 201310
  7. SYNAGIS [Suspect]
     Indication: PREMATURE BABY
     Route: 030
     Dates: start: 20131106
  8. SYNAGIS [Suspect]
     Indication: LUNG DISORDER
     Route: 030
     Dates: start: 20131106
  9. ABIDEC [Concomitant]
  10. FERINSOL [Concomitant]
  11. ZITHROMAX [Concomitant]
     Indication: PRODUCT USED FOR UNKNOWN INDICATION
  12. MOTILIUM [Concomitant]
     Indication: PRODUCT USED FOR UNKNOWN INDICATION

REACTIONS (3)
  - Bronchiolitis [Recovered/Resolved]
  - Diarrhoea [Recovered/Resolved]
  - Irritability [Recovered/Resolved]
